FAERS Safety Report 12331608 (Version 3)
Quarter: 2016Q2

REPORT INFORMATION
  Report Type: Spontaneous
  Country: US (occurrence: US)
  Receive Date: 20160504
  Receipt Date: 20160628
  Transmission Date: 20160815
  Serious: No
  Sender: FDA-Public Use
  Company Number: US-GLAXOSMITHKLINE-US2016GSK056312

PATIENT
  Sex: Female
  Weight: 86.18 kg

DRUGS (1)
  1. RANITIDINE HYDROCHLORIDE TABLET [Suspect]
     Active Substance: RANITIDINE HYDROCHLORIDE
     Indication: GASTROOESOPHAGEAL REFLUX DISEASE
     Dosage: 150 MG, BID
     Dates: start: 2015

REACTIONS (2)
  - Product quality issue [Unknown]
  - Therapeutic response decreased [Unknown]
